FAERS Safety Report 21604490 (Version 1)
Quarter: 2022Q4

REPORT INFORMATION
  Report Type: Spontaneous
  Country: US (occurrence: None)
  Receive Date: 20221116
  Receipt Date: 20221116
  Transmission Date: 20230113
  Serious: No
  Sender: FDA-Public Use
  Company Number: None

PATIENT
  Sex: 0

DRUGS (2)
  1. MYRBETRIQ [Suspect]
     Active Substance: MIRABEGRON
  2. TROSPIUM [Suspect]
     Active Substance: TROSPIUM

REACTIONS (2)
  - Treatment failure [None]
  - Adverse drug reaction [None]
